FAERS Safety Report 25990220 (Version 1)
Quarter: 2025Q4

REPORT INFORMATION
  Report Type: Spontaneous
  Country: US (occurrence: US)
  Receive Date: 20251103
  Receipt Date: 20251103
  Transmission Date: 20260118
  Serious: Yes (Hospitalization)
  Sender: ANI
  Company Number: US-ANIPHARMA-2025-US-048119

PATIENT
  Age: 37 Year
  Sex: Female

DRUGS (1)
  1. CORTICOTROPIN [Suspect]
     Active Substance: CORTICOTROPIN
     Indication: Psoriatic arthropathy
     Dosage: INJECT 80 UNITS (1ML) SUBCUTANEOUSLY THREE TIMES WEEKLY AS DIRECTED.
     Route: 058
     Dates: start: 202412

REACTIONS (1)
  - Pain [Unknown]
